FAERS Safety Report 8794445 (Version 1)
Quarter: 2012Q4

REPORT INFORMATION
  Report Type: 
  Country: MA (occurrence: MA)
  Receive Date: 20120917
  Receipt Date: 20120917
  Transmission Date: 20130627
  Serious: Yes (Death)
  Sender: FDA-Public Use
  Company Number: PHHY2004MA005644

PATIENT
  Sex: Female

DRUGS (2)
  1. GLIVEC [Suspect]
     Dates: start: 20040520
  2. GLIVEC [Suspect]
     Dosage: UNK

REACTIONS (3)
  - Death [Fatal]
  - Oedema [Unknown]
  - Fluid retention [Unknown]
